FAERS Safety Report 12444849 (Version 2)
Quarter: 2016Q3

REPORT INFORMATION
  Report Type: Spontaneous
  Country: BR (occurrence: BR)
  Receive Date: 20160607
  Receipt Date: 20160725
  Transmission Date: 20161109
  Serious: Yes (Other)
  Sender: FDA-Public Use
  Company Number: PHHY2016BR075574

PATIENT
  Age: 63 Year
  Sex: Female

DRUGS (1)
  1. CANDESARTAN+HYDROCHLOROTHIAZIDE [Suspect]
     Active Substance: CANDESARTAN CILEXETIL\HYDROCHLOROTHIAZIDE
     Indication: ESSENTIAL HYPERTENSION
     Dosage: 28.5 MG, QD
     Route: 048
     Dates: start: 20160402

REACTIONS (7)
  - Blood pressure increased [Recovered/Resolved]
  - Tinnitus [Unknown]
  - Migraine [Recovered/Resolved]
  - Dizziness [Recovered/Resolved]
  - Chest discomfort [Unknown]
  - Tachycardia [Recovered/Resolved]
  - Malaise [Recovered/Resolved]
